FAERS Safety Report 24074838 (Version 1)
Quarter: 2024Q3

REPORT INFORMATION
  Report Type: Report from Study
  Country: US (occurrence: US)
  Receive Date: 20240710
  Receipt Date: 20240710
  Transmission Date: 20241017
  Serious: No
  Sender: APELLIS PHARMACEUTICALS
  Company Number: US-APELLIS-2024-APL-0000379

PATIENT

DRUGS (2)
  1. PEGCETACOPLAN [Suspect]
     Active Substance: PEGCETACOPLAN
     Indication: Paroxysmal nocturnal haemoglobinuria
     Dosage: 1080MG/20ML
     Route: 058
     Dates: start: 20230913
  2. ULTOMIRIS [Concomitant]
     Active Substance: RAVULIZUMAB-CWVZ
     Indication: Product used for unknown indication
     Dosage: UNKNOWN

REACTIONS (8)
  - Blood iron increased [Unknown]
  - Infection [Recovering/Resolving]
  - Fatigue [Recovered/Resolved]
  - Asthenia [Unknown]
  - Diarrhoea [Unknown]
  - Blood urine present [Recovering/Resolving]
  - Muscle tightness [Unknown]
  - Body temperature increased [Unknown]

NARRATIVE: CASE EVENT DATE: 20240624
